FAERS Safety Report 24270060 (Version 1)
Quarter: 2024Q3

REPORT INFORMATION
  Report Type: Spontaneous
  Country: US (occurrence: US)
  Receive Date: 20240830
  Receipt Date: 20240830
  Transmission Date: 20241017
  Serious: Yes (Other)
  Sender: JOHNSON AND JOHNSON
  Company Number: US-JNJFOC-20240865883

PATIENT

DRUGS (1)
  1. BENADRYL ALLERGY PLUS CONGESTION [Suspect]
     Active Substance: DIPHENHYDRAMINE HYDROCHLORIDE\PHENYLEPHRINE HYDROCHLORIDE
     Indication: Hallucination
     Dosage: TOOK ABOUT 20
     Route: 065

REACTIONS (1)
  - Drug abuse [Unknown]
